FAERS Safety Report 16030648 (Version 2)
Quarter: 2019Q2

REPORT INFORMATION
  Report Type: Spontaneous
  Country: US (occurrence: US)
  Receive Date: 20190304
  Receipt Date: 20190410
  Transmission Date: 20190711
  Serious: Yes (Death)
  Sender: FDA-Public Use
  Company Number: US-PFIZER INC-2018466045

PATIENT
  Age: 70 Year
  Sex: Male
  Weight: 59 kg

DRUGS (1)
  1. IBRANCE [Suspect]
     Active Substance: PALBOCICLIB
     Indication: PENILE CANCER
     Dosage: 125 MG, UNK

REACTIONS (3)
  - Appetite disorder [Unknown]
  - Product use in unapproved indication [Unknown]
  - Neoplasm progression [Fatal]
